FAERS Safety Report 4486437-3 (Version None)
Quarter: 2004Q4

REPORT INFORMATION
  Report Type: 
  Country: None (occurrence: None)
  Receive Date: 20041026
  Receipt Date: 20041026
  Transmission Date: 20050328
  Serious: Yes (Other)
  Sender: FDA-Public Use
  Company Number: None

PATIENT
  Sex: Female
  Weight: 62.1428 kg

DRUGS (3)
  1. PAXIL [Suspect]
     Indication: ANXIETY
     Dosage: 20MG DAILY ORAL
     Route: 048
  2. PAXIL [Suspect]
     Indication: DEPRESSION
     Dosage: 20MG DAILY ORAL
     Route: 048
  3. PAXIL [Suspect]
     Indication: INSOMNIA
     Dosage: 20MG DAILY ORAL
     Route: 048

REACTIONS (16)
  - AGGRESSION [None]
  - AGITATION [None]
  - ASTHENIA [None]
  - CONFUSIONAL STATE [None]
  - DIARRHOEA [None]
  - DISTURBANCE IN ATTENTION [None]
  - DIZZINESS [None]
  - FATIGUE [None]
  - INFLUENZA LIKE ILLNESS [None]
  - IRRITABILITY [None]
  - LETHARGY [None]
  - MEMORY IMPAIRMENT [None]
  - MOOD SWINGS [None]
  - SLEEP DISORDER [None]
  - VERTIGO [None]
  - VOMITING [None]
